FAERS Safety Report 11866099 (Version 2)
Quarter: 2016Q2

REPORT INFORMATION
  Report Type: Spontaneous
  Country: PT (occurrence: PT)
  Receive Date: 20151223
  Receipt Date: 20160517
  Transmission Date: 20160815
  Serious: Yes (Death, Hospitalization, Other)
  Sender: FDA-Public Use
  Company Number: PT-GILEAD-2015-0186664

PATIENT
  Sex: Male

DRUGS (5)
  1. RIBAVIRIN. [Concomitant]
     Active Substance: RIBAVIRIN
     Indication: PRODUCT USED FOR UNKNOWN INDICATION
     Dosage: UNK
     Dates: end: 20150613
  2. TRUVADA [Concomitant]
     Active Substance: EMTRICITABINE\TENOFOVIR DISOPROXIL FUMARATE
     Indication: HIV INFECTION
     Dosage: UNK
     Route: 065
  3. HARVONI [Suspect]
     Active Substance: LEDIPASVIR\SOFOSBUVIR
     Indication: PRODUCT USED FOR UNKNOWN INDICATION
     Dosage: UNK
     Route: 065
     Dates: end: 20150613
  4. RALTEGRAVIR. [Concomitant]
     Active Substance: RALTEGRAVIR
     Dosage: UNK
     Dates: start: 201211
  5. ATAZANAVIR SULFATE W/RITONAVIR [Concomitant]
     Active Substance: ATAZANAVIR SULFATE\RITONAVIR
     Indication: PRODUCT USED FOR UNKNOWN INDICATION
     Dosage: UNK
     Dates: start: 201211

REACTIONS (2)
  - Sepsis [Unknown]
  - Encephalopathy [Fatal]
